FAERS Safety Report 21882761 (Version 1)
Quarter: 2023Q1

REPORT INFORMATION
  Report Type: Spontaneous
  Country: US (occurrence: US)
  Receive Date: 20230119
  Receipt Date: 20230119
  Transmission Date: 20230418
  Serious: Yes (Other)
  Sender: FDA-Public Use
  Company Number: US-STRIDES ARCOLAB LIMITED-2022SP002869

PATIENT
  Age: 46 Year
  Sex: Male

DRUGS (1)
  1. METHOTREXATE [Suspect]
     Active Substance: METHOTREXATE
     Indication: Parapsoriasis
     Dosage: UNK, MAXIMUM WEEKLY DOSE OF 10MG
     Route: 048

REACTIONS (3)
  - Therapy partial responder [Unknown]
  - Fatigue [Unknown]
  - Off label use [Unknown]
